FAERS Safety Report 25530049 (Version 1)
Quarter: 2025Q3

REPORT INFORMATION
  Report Type: Spontaneous
  Country: GB (occurrence: GB)
  Receive Date: 20250708
  Receipt Date: 20250708
  Transmission Date: 20251021
  Serious: Yes (Hospitalization, Other)
  Sender: ELI LILLY AND COMPANY
  Company Number: None

PATIENT
  Sex: Female
  Weight: 59 kg

DRUGS (1)
  1. MOUNJARO [Suspect]
     Active Substance: TIRZEPATIDE
     Indication: Weight control
     Dosage: 15 MG, WEEKLY (1/W)
     Route: 065
     Dates: start: 20250619, end: 20250621

REACTIONS (12)
  - Temperature intolerance [Not Recovered/Not Resolved]
  - Muscle spasms [Not Recovered/Not Resolved]
  - Vomiting projectile [Not Recovered/Not Resolved]
  - Intussusception [Unknown]
  - Medication error [Unknown]
  - Pancreatitis [Unknown]
  - Nausea [Not Recovered/Not Resolved]
  - Hyperhidrosis [Unknown]
  - Insomnia [Unknown]
  - Chills [Unknown]
  - Cold sweat [Unknown]
  - Abdominal pain [Unknown]

NARRATIVE: CASE EVENT DATE: 20250620
